FAERS Safety Report 9669344 (Version 3)
Quarter: 2013Q4

REPORT INFORMATION
  Report Type: Spontaneous
  Country: US (occurrence: US)
  Receive Date: 20131105
  Receipt Date: 20131118
  Transmission Date: 20140711
  Serious: Yes (Other)
  Sender: FDA-Public Use
  Company Number: US-PFIZER INC-2013312721

PATIENT
  Age: 67 Year
  Sex: Female

DRUGS (2)
  1. CLINDAMYCIN HCL [Suspect]
     Indication: CELLULITIS
     Dosage: UNK
     Route: 042
  2. VANCOMYCIN HCL [Suspect]
     Indication: CELLULITIS
     Dosage: UNK
     Route: 042

REACTIONS (2)
  - Acute generalised exanthematous pustulosis [Recovering/Resolving]
  - Condition aggravated [Recovering/Resolving]
